FAERS Safety Report 8879189 (Version 1)
Quarter: 2012Q4

REPORT INFORMATION
  Report Type: Spontaneous
  Country: DE (occurrence: None)
  Receive Date: 20121026
  Receipt Date: 20121026
  Transmission Date: 20130627
  Serious: Yes (Other)
  Sender: FDA-Public Use
  Company Number: 2012DEPDE00456

PATIENT

DRUGS (1)
  1. DEPOCYTE [Suspect]
     Indication: CENTRAL NERVOUS SYSTEM LYMPHOMA
     Dosage: unk, 1x each cycle, intrathecal
     Route: 037

REACTIONS (2)
  - Cerebral haemorrhage [None]
  - Cerebral infarction [None]
